FAERS Safety Report 18118653 (Version 1)
Quarter: 2020Q3

REPORT INFORMATION
  Report Type: Spontaneous
  Country: US (occurrence: US)
  Receive Date: 20200805
  Receipt Date: 20200805
  Transmission Date: 20201103
  Serious: No
  Sender: FDA-Public Use
  Company Number: None

PATIENT
  Sex: Female

DRUGS (2)
  1. AJOVY [Suspect]
     Active Substance: FREMANEZUMAB-VFRM
     Indication: MIGRAINE
     Route: 058
     Dates: start: 20200725
  2. AJOVY [Suspect]
     Active Substance: FREMANEZUMAB-VFRM
     Indication: BLEPHAROSPASM
     Route: 058
     Dates: start: 20200725

REACTIONS (4)
  - Injection site swelling [None]
  - Injection site mass [None]
  - Device malfunction [None]
  - Incorrect dose administered by device [None]
